FAERS Safety Report 17438048 (Version 4)
Quarter: 2020Q2

REPORT INFORMATION
  Report Type: Report from Study
  Country: CA (occurrence: CA)
  Receive Date: 20200220
  Receipt Date: 20200621
  Transmission Date: 20200713
  Serious: Yes (Hospitalization, Other)
  Sender: FDA-Public Use
  Company Number: PHHY2018CA015411

PATIENT
  Age: 84 Year
  Sex: Male

DRUGS (12)
  1. CAPECITABINE. [Concomitant]
     Active Substance: CAPECITABINE
     Indication: PRODUCT USED FOR UNKNOWN INDICATION
     Dosage: UNK (WITH RADIATION)
     Route: 065
  2. SANDOSTATIN LAR DEPOT [Suspect]
     Active Substance: OCTREOTIDE ACETATE
     Dosage: 30 MG, Q4W
     Route: 030
  3. SANDOSTATIN [Suspect]
     Active Substance: OCTREOTIDE ACETATE
     Indication: CARCINOID TUMOUR
     Dosage: UNK, ONCE/SINGLE
     Route: 058
     Dates: start: 20171204, end: 20171204
  4. ALFUZOSIN [Concomitant]
     Active Substance: ALFUZOSIN
     Indication: PRODUCT USED FOR UNKNOWN INDICATION
     Dosage: 10 MG OD
     Route: 065
     Dates: start: 20200601
  5. SANDOSTATIN LAR DEPOT [Suspect]
     Active Substance: OCTREOTIDE ACETATE
     Indication: NEUROENDOCRINE TUMOUR
     Dosage: 30 MG, QMO
     Route: 030
     Dates: start: 20171228
  6. DUTASTERIDE. [Concomitant]
     Active Substance: DUTASTERIDE
     Indication: PRODUCT USED FOR UNKNOWN INDICATION
     Dosage: 0.5 MG
     Route: 065
     Dates: start: 20200601
  7. SANDOSTATIN LAR DEPOT [Suspect]
     Active Substance: OCTREOTIDE ACETATE
     Indication: METASTASES TO LIVER
     Dosage: 30 MG, QMO
     Route: 030
  8. FELODIPIN [Concomitant]
     Active Substance: FELODIPINE
     Indication: PRODUCT USED FOR UNKNOWN INDICATION
     Dosage: 5 MG, QD
     Route: 065
  9. CEPHALEXIN. [Concomitant]
     Active Substance: CEPHALEXIN
     Indication: PROPHYLAXIS
     Dosage: UNK
     Route: 065
  10. LEVOTHYROXINE. [Concomitant]
     Active Substance: LEVOTHYROXINE
     Indication: PRODUCT USED FOR UNKNOWN INDICATION
     Dosage: 0.88 MG OD
     Route: 065
  11. SANDOSTATIN LAR DEPOT [Suspect]
     Active Substance: OCTREOTIDE ACETATE
     Indication: CARCINOID TUMOUR
     Dosage: UNK
     Route: 030
     Dates: start: 20171204
  12. IMODIUM [Concomitant]
     Active Substance: LOPERAMIDE HYDROCHLORIDE
     Indication: PRODUCT USED FOR UNKNOWN INDICATION
     Dosage: UNK
     Route: 065

REACTIONS (34)
  - Anaemia [Unknown]
  - Rectal haemorrhage [Unknown]
  - Second primary malignancy [Unknown]
  - Dysuria [Unknown]
  - Intestinal metastasis [Unknown]
  - Malignant neoplasm progression [Unknown]
  - Weight decreased [Unknown]
  - Contusion [Unknown]
  - Abnormal faeces [Unknown]
  - Jaundice [Unknown]
  - Fall [Unknown]
  - Sinus congestion [Unknown]
  - Fatigue [Unknown]
  - Needle issue [Unknown]
  - Dizziness [Unknown]
  - Blood pressure systolic increased [Unknown]
  - Injection site pain [Unknown]
  - Rectal adenocarcinoma [Recovered/Resolved]
  - Skin laceration [Unknown]
  - Musculoskeletal chest pain [Unknown]
  - Rectal cancer stage III [Unknown]
  - Flatulence [Unknown]
  - Injection site discomfort [Unknown]
  - Fat tissue decreased [Unknown]
  - Decreased appetite [Unknown]
  - Drug intolerance [Unknown]
  - Hypertension [Unknown]
  - Back pain [Unknown]
  - Pyrexia [Unknown]
  - Incorrect dose administered [Unknown]
  - Blood pressure decreased [Unknown]
  - Urinary tract infection [Unknown]
  - Dehydration [Unknown]
  - Body temperature decreased [Unknown]

NARRATIVE: CASE EVENT DATE: 2018
